FAERS Safety Report 7860764-1 (Version None)
Quarter: 2011Q4

REPORT INFORMATION
  Report Type: 
  Country: None (occurrence: None)
  Receive Date: 20111027
  Receipt Date: 20111017
  Transmission Date: 20120403
  Serious: Yes (Other)
  Sender: FDA-Public Use
  Company Number: ZA-JNJFOC-20111008532

PATIENT
  Sex: Male

DRUGS (4)
  1. REVELLEX [Suspect]
     Dosage: DOSE 1
     Route: 042
  2. REVELLEX [Suspect]
     Indication: PRODUCT USED FOR UNKNOWN INDICATION
     Dosage: DOSE 1
     Route: 042
  3. REVELLEX [Suspect]
     Dosage: DOSE 1
     Route: 042
  4. REVELLEX [Suspect]
     Dosage: DOSE 1
     Route: 042

REACTIONS (16)
  - HEADACHE [None]
  - HYPERAESTHESIA [None]
  - DIPLOPIA [None]
  - INFUSION RELATED REACTION [None]
  - PYREXIA [None]
  - SINUS CONGESTION [None]
  - VISION BLURRED [None]
  - JOINT SWELLING [None]
  - NAUSEA [None]
  - ARTHRALGIA [None]
  - FEELING HOT [None]
  - BACK PAIN [None]
  - FLUSHING [None]
  - SINUSITIS [None]
  - DYSPNOEA [None]
  - THERAPEUTIC RESPONSE DECREASED [None]
